FAERS Safety Report 15330335 (Version 1)
Quarter: 2018Q3

REPORT INFORMATION
  Report Type: Spontaneous
  Country: US (occurrence: US)
  Receive Date: 20180829
  Receipt Date: 20180829
  Transmission Date: 20181010
  Serious: No
  Sender: FDA-Public Use
  Company Number: US-SA-2018SA238024

PATIENT
  Age: 59 Year
  Sex: Male

DRUGS (2)
  1. EUCRISA [Concomitant]
     Active Substance: CRISABOROLE
  2. AMBIEN [Suspect]
     Active Substance: ZOLPIDEM TARTRATE
     Indication: PRODUCT USED FOR UNKNOWN INDICATION

REACTIONS (10)
  - Erythema of eyelid [Unknown]
  - Infection [Unknown]
  - Ulcer [Unknown]
  - Intelligence test abnormal [Unknown]
  - Fatigue [Unknown]
  - Stress [Unknown]
  - Product availability issue [Unknown]
  - Sleep disorder [Unknown]
  - Rash [Unknown]
  - Fibromyalgia [Unknown]
